FAERS Safety Report 19322494 (Version 1)
Quarter: 2021Q2

REPORT INFORMATION
  Report Type: Spontaneous
  Country: NL (occurrence: NL)
  Receive Date: 20210528
  Receipt Date: 20210528
  Transmission Date: 20210717
  Serious: Yes (Other)
  Sender: FDA-Public Use
  Company Number: NL-AUROBINDO-AUR-APL-2021-022402

PATIENT
  Age: 4 Year
  Sex: Female

DRUGS (3)
  1. VALPROATE SODIUM. [Suspect]
     Active Substance: VALPROATE SODIUM
     Indication: IDIOPATHIC GENERALISED EPILEPSY
     Dosage: 31 MILLIGRAM/KILOGRAM, ONCE A DAY
     Route: 065
  2. VALPROATE SODIUM. [Suspect]
     Active Substance: VALPROATE SODIUM
     Dosage: 5 MILLIGRAM/KILOGRAM, ONCE A DAY
     Route: 065
  3. VALPROATE SODIUM. [Suspect]
     Active Substance: VALPROATE SODIUM
     Dosage: 31 MILLIGRAM/KILOGRAM, ONCE A DAY
     Route: 065

REACTIONS (5)
  - Anxiety [Recovered/Resolved]
  - Hallucination, visual [Recovered/Resolved]
  - Withdrawal syndrome [Recovered/Resolved]
  - Hallucination, auditory [Recovered/Resolved]
  - Hallucination, tactile [Recovered/Resolved]
